FAERS Safety Report 5944756-5 (Version None)
Quarter: 2008Q4

REPORT INFORMATION
  Report Type: 
  Country: None (occurrence: None)
  Receive Date: 20081107
  Receipt Date: 20081031
  Transmission Date: 20090506
  Serious: Yes (Hospitalization)
  Sender: FDA-Public Use
  Company Number: US-AMGEN-QUU313466

PATIENT
  Sex: Female
  Weight: 93.1 kg

DRUGS (2)
  1. ENBREL [Suspect]
     Indication: RHEUMATOID ARTHRITIS
     Route: 058
     Dates: start: 20060322
  2. COUMADIN [Concomitant]

REACTIONS (18)
  - ANXIETY [None]
  - ATRIAL FIBRILLATION [None]
  - BACK PAIN [None]
  - CARDIAC ENZYMES INCREASED [None]
  - CHEST PAIN [None]
  - DIZZINESS [None]
  - FAECES DISCOLOURED [None]
  - FAECES PALE [None]
  - FATIGUE [None]
  - LEUKOCYTOSIS [None]
  - MALAISE [None]
  - OEDEMA PERIPHERAL [None]
  - OROPHARYNGEAL PAIN [None]
  - PHARYNGEAL ERYTHEMA [None]
  - PRODUCTIVE COUGH [None]
  - PRURITUS GENERALISED [None]
  - VASCULAR INSUFFICIENCY [None]
  - WEIGHT DECREASED [None]
